FAERS Safety Report 9521854 (Version 1)
Quarter: 2013Q1

REPORT INFORMATION
  Report Type: Spontaneous
  Country: US (occurrence: None)
  Receive Date: 20130305
  Receipt Date: 20130305
  Transmission Date: 20140127
  Serious: Yes (Disabling)
  Sender: FDA-Public Use
  Company Number: 163-21880-12070913

PATIENT
  Age: 47 Year
  Sex: Female

DRUGS (3)
  1. REVLIMID (LENALIDOMIDE) (CAPSULES) [Suspect]
     Indication: PLASMA CELL MYELOMA
     Dosage: 20 MG, 2 IN 1 D, PO
     Dates: start: 20120619, end: 20120719
  2. DEXAMETHASONE (DEXAMETHASONE) (TABLETS) [Concomitant]
  3. VELCADE (BORTEZOMIB) (INJECTION) [Concomitant]

REACTIONS (4)
  - Bone pain [None]
  - Diarrhoea [None]
  - Nausea [None]
  - Abdominal pain [None]
